FAERS Safety Report 9892305 (Version 2)
Quarter: 2014Q2

REPORT INFORMATION
  Report Type: Spontaneous
  Country: FR (occurrence: FR)
  Receive Date: 20140212
  Receipt Date: 20140618
  Transmission Date: 20141212
  Serious: Yes (Other)
  Sender: FDA-Public Use
  Company Number: PHHY2014FR009839

PATIENT
  Age: 60 Year
  Sex: 0

DRUGS (20)
  1. CICLOSPORIN [Suspect]
     Indication: IMMUNOSUPPRESSANT DRUG THERAPY
     Dosage: 25 MG, BID
     Route: 048
  2. CICLOSPORIN [Interacting]
     Dosage: 100 MG, PER DAY
  3. CICLOSPORIN [Interacting]
     Dosage: 50 MG, PER DAY
  4. CICLOSPORIN [Interacting]
     Dosage: 200 MG, DAILY
  5. CICLOSPORIN [Interacting]
     Dosage: 50 MG, DAILY
  6. ARGATROBAN [Interacting]
     Route: 042
  7. HEPARIN [Suspect]
     Indication: ANTICOAGULANT THERAPY
  8. EVEROLIMUS [Concomitant]
     Indication: IMMUNOSUPPRESSION
     Dosage: 0.75 MG (0.50 MG +0.25 MG),DAILY
     Route: 048
  9. MYCOPHENOLATE MOFETIL [Concomitant]
     Indication: IMMUNOSUPPRESSION
     Dosage: 2 G, DAILY
     Route: 042
  10. MYCOPHENOLATE MOFETIL [Concomitant]
     Dosage: 1000 MG, BID
  11. PREDNISOLONE [Concomitant]
     Indication: IMMUNOSUPPRESSION
     Dosage: 5 MG, QD, (0.1 MG/KG ADAY)
     Route: 048
  12. METHYLPREDNISOLONE [Concomitant]
     Indication: IMMUNOSUPPRESSANT DRUG THERAPY
     Dosage: 40 MG, DAILY
     Route: 042
  13. ACETAMINOPHEN [Concomitant]
     Dosage: 1000 MG, FOUR TIMES A DAY ON DEMAND
  14. ONDANSETRON [Concomitant]
     Dosage: 4 MG, EVERY 8 HOURS ON DEMAND
  15. ESOMEPRAZOLE [Concomitant]
     Dosage: 40 MG, DAILY
  16. MIDAZOLAM [Concomitant]
     Indication: ANAESTHESIA
  17. SUFENTANIL CITRATE [Concomitant]
     Indication: ANAESTHESIA
  18. CEFTAZIDIME [Concomitant]
     Dosage: 2000 MG, DAILY
     Route: 042
  19. LINEZOLID [Concomitant]
     Dosage: 600 MG, BID
     Route: 042
  20. GANCICLOVIR [Concomitant]
     Dosage: 125 MG, BID
     Route: 042

REACTIONS (9)
  - Right ventricular failure [Unknown]
  - Pericardial effusion [Unknown]
  - Renal function test abnormal [Unknown]
  - Haemorrhage [Unknown]
  - Immunosuppressant drug level decreased [Recovered/Resolved]
  - Creatinine renal clearance increased [Unknown]
  - Blood albumin decreased [Unknown]
  - Thrombocytopenia [Recovering/Resolving]
  - Drug interaction [Unknown]
